FAERS Safety Report 8276635-5 (Version None)
Quarter: 2012Q2

REPORT INFORMATION
  Report Type: 
  Country: None (occurrence: None)
  Receive Date: 20120412
  Receipt Date: 20120403
  Transmission Date: 20120825
  Serious: Yes (Hospitalization, Other)
  Sender: FDA-Public Use
  Company Number: PHHY2012BR026076

PATIENT
  Sex: Female
  Weight: 102 kg

DRUGS (13)
  1. PARACETAMOL WITH CODEINE PHOSPHATE [Concomitant]
     Indication: HEADACHE
     Dosage: 30 MG, UNK
  2. GLYBURIDE [Concomitant]
     Indication: DIABETES MELLITUS
     Dosage: 5 MG, UNK
     Dates: start: 20120107
  3. ATENOLOL [Concomitant]
     Dosage: 4 DF, UNK
  4. ISORDIL [Concomitant]
     Indication: CHEST PAIN
     Dosage: 5 MG, UNK
  5. RASILEZ [Suspect]
     Indication: HYPERTENSION
     Dosage: 1 DF, UNK
     Route: 048
     Dates: end: 20120229
  6. FUROSEMIDE [Concomitant]
  7. AMILORIDE HYDROCHLORIDE W/FUROSEMIDE [Concomitant]
     Indication: SWELLING
  8. CLONAZEPAM [Concomitant]
     Dosage: 2 MG, 1 TABLET AT NIGHT, FOR ABOUT 2 YEARS
  9. RASILEZ [Suspect]
     Indication: ANGINA PECTORIS
  10. AMILORIDE HYDROCHLORIDE [Concomitant]
  11. CODEX [Concomitant]
     Indication: HEADACHE
  12. SPIRONOLACTONE [Concomitant]
     Dosage: 1 DF
     Dates: start: 20101201
  13. CLONAZEPAM [Concomitant]
     Indication: HYPERTENSION
     Dosage: 2 MG, UNK

REACTIONS (10)
  - OEDEMA PERIPHERAL [None]
  - MALAISE [None]
  - DIABETES MELLITUS [None]
  - PAIN IN EXTREMITY [None]
  - HEADACHE [None]
  - BLOOD PRESSURE INCREASED [None]
  - ANGINA PECTORIS [None]
  - CEREBRAL ISCHAEMIA [None]
  - ERYTHEMA [None]
  - DECREASED ACTIVITY [None]
